FAERS Safety Report 25499150 (Version 2)
Quarter: 2025Q3

REPORT INFORMATION
  Report Type: Spontaneous
  Country: US (occurrence: US)
  Receive Date: 20250701
  Receipt Date: 20250714
  Transmission Date: 20251020
  Serious: Yes (Hospitalization)
  Sender: TEVA
  Company Number: US-TEVA-VS-3345180

PATIENT
  Age: 67 Year
  Sex: Female

DRUGS (5)
  1. PREDNISONE [Suspect]
     Active Substance: PREDNISONE
     Indication: Retinal vascular disorder
     Route: 048
  2. DEXAMETHASONE [Suspect]
     Active Substance: DEXAMETHASONE
     Indication: Retinal vascular disorder
     Route: 050
  3. PREDNISOLONE [Suspect]
     Active Substance: PREDNISOLONE
     Indication: Retinal vascular disorder
     Dosage: TOPICAL PREDNISOLONE-ACETATE HOURLY IN THE LEFT EYE
     Route: 061
  4. AFLIBERCEPT [Concomitant]
     Active Substance: AFLIBERCEPT
     Indication: Age-related macular degeneration
     Route: 065
  5. PEGCETACOPLAN [Suspect]
     Active Substance: PEGCETACOPLAN
     Indication: Age-related macular degeneration
     Route: 065

REACTIONS (3)
  - Retinal vascular disorder [Unknown]
  - Drug ineffective [Unknown]
  - Choroiditis [Unknown]
